FAERS Safety Report 6012207-0 (Version None)
Quarter: 2008Q4

REPORT INFORMATION
  Report Type: 
  Country: None (occurrence: None)
  Receive Date: 20081216
  Receipt Date: 20071217
  Transmission Date: 20090506
  Serious: Yes (Hospitalization)
  Sender: FDA-Public Use
  Company Number: US-WYE-H01809907

PATIENT

DRUGS (1)
  1. EFFEXOR XR [Suspect]
     Dosage: 450 MG FREQUENCY UNSPECIFIED

REACTIONS (1)
  - PANCREATITIS [None]
